FAERS Safety Report 17414809 (Version 1)
Quarter: 2020Q1

REPORT INFORMATION
  Report Type: Spontaneous
  Country: US (occurrence: US)
  Receive Date: 20200213
  Receipt Date: 20200213
  Transmission Date: 20200409
  Serious: No
  Sender: FDA-Public Use
  Company Number: US-TEVA-2020-US-1184348

PATIENT
  Sex: Female

DRUGS (1)
  1. MEDROXYPROGESTERONE [Suspect]
     Active Substance: MEDROXYPROGESTERONE
     Indication: ENDOMETRIAL HYPERPLASIA
     Route: 065
     Dates: start: 20200114

REACTIONS (1)
  - Drug ineffective [Unknown]
